FAERS Safety Report 16430277 (Version 1)
Quarter: 2019Q2

REPORT INFORMATION
  Report Type: Spontaneous
  Country: FR (occurrence: FR)
  Receive Date: 20190614
  Receipt Date: 20190614
  Transmission Date: 20190711
  Serious: Yes (Death, Hospitalization)
  Sender: FDA-Public Use
  Company Number: FR-TESAROUBC-2019-TSO02197-FR

PATIENT

DRUGS (1)
  1. ZEJULA [Suspect]
     Active Substance: NIRAPARIB
     Indication: OVARIAN CANCER
     Dosage: 300 MG, UNK
     Dates: start: 20190315, end: 20190401

REACTIONS (4)
  - Thrombocytopenic purpura [Fatal]
  - Septic shock [Fatal]
  - Neutropenia [Fatal]
  - Thrombocytopenia [Fatal]

NARRATIVE: CASE EVENT DATE: 201903
